FAERS Safety Report 12667246 (Version 1)
Quarter: 2016Q3

REPORT INFORMATION
  Report Type: Spontaneous
  Country: US (occurrence: None)
  Receive Date: 20160818
  Receipt Date: 20160818
  Transmission Date: 20161109
  Serious: Yes (Hospitalization)
  Sender: FDA-Public Use
  Company Number: None

PATIENT
  Age: 57 Year
  Sex: Female
  Weight: 61.24 kg

DRUGS (20)
  1. MULTIVITAMIN (DAILY MULTI-VITAMIN) [Concomitant]
  2. ESTRADIOL (ESTRACE) [Concomitant]
  3. TOPAMAX [Concomitant]
     Active Substance: TOPIRAMATE
  4. ZOLMITRIPTAN (ZOMIG) [Concomitant]
  5. BLOOD SUGAR DIAGNOSTIC (ONE TOUCH ULTRA TEST) [Concomitant]
  6. TOPAMAX [Suspect]
     Active Substance: TOPIRAMATE
     Indication: MIGRAINE
     Dosage: TOPAMAX - 1 DAILY FOR 5 DAYS - MOUTH
     Route: 048
     Dates: start: 20160727, end: 20160727
  7. MULTIVITAMIN [Concomitant]
     Active Substance: VITAMINS
  8. ACETAMINOPHEN,CAFFEINE, BUTALBITAL [Concomitant]
  9. MOBIC [Concomitant]
     Active Substance: MELOXICAM
  10. PRILOSEC [Concomitant]
     Active Substance: OMEPRAZOLE MAGNESIUM
  11. LIPITOR [Concomitant]
     Active Substance: ATORVASTATIN CALCIUM
  12. AZITHROMYCIN (ZITHROMAX Z-PAK) [Concomitant]
  13. DICYCLOMINE (BENTYL) [Concomitant]
  14. CALCIUM [Concomitant]
     Active Substance: CALCIUM
  15. CALCIUM [Concomitant]
     Active Substance: CALCIUM
  16. MOBIC [Concomitant]
     Active Substance: MELOXICAM
  17. COLLAGEN-MSM [Concomitant]
  18. EZETIMIBE (ZETIA) [Concomitant]
  19. FLUTICASONE (FLONASE) [Concomitant]
  20. DIPHENOXYLATE-ATROPINE (LOMOTIL) [Concomitant]

REACTIONS (27)
  - Confusional state [None]
  - Asthenia [None]
  - Abdominal pain upper [None]
  - Arthralgia [None]
  - Burning sensation [None]
  - Clumsiness [None]
  - Eye pain [None]
  - Eye irritation [None]
  - Visual acuity reduced [None]
  - Decreased activity [None]
  - Vision blurred [None]
  - Tinnitus [None]
  - Abdominal distension [None]
  - Nervousness [None]
  - Ocular hyperaemia [None]
  - Respiratory rate increased [None]
  - Somnolence [None]
  - Dyspnoea [None]
  - Diarrhoea [None]
  - Diplopia [None]
  - Speech disorder [None]
  - Fatigue [None]
  - Myalgia [None]
  - Disturbance in attention [None]
  - Paraesthesia [None]
  - Balance disorder [None]
  - Intraocular pressure increased [None]

NARRATIVE: CASE EVENT DATE: 20160727
